FAERS Safety Report 7948424-X (Version None)
Quarter: 2011Q4

REPORT INFORMATION
  Report Type: 
  Country: None (occurrence: None)
  Receive Date: 20111130
  Receipt Date: 20110628
  Transmission Date: 20120403
  Serious: Yes (Other)
  Sender: FDA-Public Use
  Company Number: JP-BAYER-2011-015569

PATIENT
  Age: 77 Year
  Sex: Female
  Weight: 137 kg

DRUGS (8)
  1. LASIX [Concomitant]
     Indication: ASCITES
     Dosage: DAILY DOSE 20 MG
     Route: 048
  2. LANSOPRAZOLE [Concomitant]
     Indication: PROPHYLAXIS
     Route: 048
  3. LANSOPRAZOLE [Concomitant]
     Indication: PROPHYLAXIS
     Dosage: DAILY DOSE 15 MG
     Route: 048
     Dates: start: 20110126, end: 20110202
  4. LOXONIN [Concomitant]
     Indication: BACK PAIN
     Route: 065
  5. NEXAVAR [Suspect]
     Indication: HEPATIC NEOPLASM MALIGNANT
     Dosage: 400 MG, BID
     Route: 048
     Dates: start: 20110126, end: 20110131
  6. ALDACTONE [Concomitant]
     Indication: ASCITES
     Dosage: DAILY DOSE 25 MG
     Route: 048
  7. LOBU [Concomitant]
     Indication: BACK PAIN
     Dosage: DAILY DOSE 180 MG
     Route: 048
     Dates: start: 20110126, end: 20110202
  8. URSO 250 [Concomitant]
     Dosage: DAILY DOSE 600 MG
     Route: 048

REACTIONS (1)
  - ENCEPHALOPATHY [None]
